FAERS Safety Report 8954848 (Version 2)
Quarter: 2012Q4

REPORT INFORMATION
  Report Type: 
  Country: CH (occurrence: CH)
  Receive Date: 20121207
  Receipt Date: 20121220
  Transmission Date: 20130627
  Serious: Yes (Hospitalization)
  Sender: FDA-Public Use
  Company Number: CH-PFIZER INC-2012304718

PATIENT
  Age: 77 Year
  Sex: Female
  Weight: 60 kg

DRUGS (8)
  1. SORTIS [Suspect]
     Indication: SUBENDOCARDIAL MYOCARDIAL INFARCTION
     Dosage: 20 mg, 1x/day
     Route: 048
     Dates: start: 20100210, end: 20121110
  2. KLACID [Interacting]
     Indication: BACTERIAL INFECTION DUE TO HELICOBACTER PYLORI (H. PYLORI)
     Dosage: 1 g, 1x/day
     Route: 048
     Dates: start: 20121019, end: 20121026
  3. AMLODIPINE BESILATE [Interacting]
     Indication: ESSENTIAL HYPERTENSION
     Dosage: 5 mg, 1x/day
     Route: 048
     Dates: start: 20121019, end: 20121109
  4. COAPROVEL [Suspect]
     Indication: ESSENTIAL HYPERTENSION
     Dosage: 12.5 mg/150 mg, 1x/day
     Route: 048
     Dates: end: 20121110
  5. AMOXICILLIN TRIHYDRATE [Suspect]
     Indication: BACTERIAL INFECTION DUE TO HELICOBACTER PYLORI (H. PYLORI)
     Dosage: 2 g, 1x/day
     Route: 048
     Dates: start: 20121019, end: 20121026
  6. ASPIRIN CARDIO [Concomitant]
     Dosage: 100 mg, 1x/day
     Route: 048
     Dates: start: 201002
  7. CONCOR [Concomitant]
     Dosage: 2.5 mg, 1x/day
     Route: 048
  8. PANTOZOL [Concomitant]
     Dosage: 40 mg, 1x/day
     Route: 048
     Dates: start: 201210

REACTIONS (4)
  - Drug interaction [Recovering/Resolving]
  - Rhabdomyolysis [Recovering/Resolving]
  - Syncope [Recovered/Resolved]
  - Renal failure chronic [Recovering/Resolving]
